FAERS Safety Report 9857922 (Version 2)
Quarter: 2014Q1

REPORT INFORMATION
  Report Type: Spontaneous
  Country: JP (occurrence: JP)
  Receive Date: 20140131
  Receipt Date: 20140217
  Transmission Date: 20141002
  Serious: Yes (Death, Other)
  Sender: FDA-Public Use
  Company Number: JP-ASTRAZENECA-2014SE06854

PATIENT
  Age: 33636 Day
  Sex: Male

DRUGS (1)
  1. MEROPEN [Suspect]
     Indication: PNEUMONIA ASPIRATION
     Route: 042
     Dates: start: 20140108, end: 20140115

REACTIONS (3)
  - Disseminated intravascular coagulation [Fatal]
  - Cardiac failure congestive [Fatal]
  - White blood cell count decreased [Recovered/Resolved]
